FAERS Safety Report 7528741-8 (Version None)
Quarter: 2011Q2

REPORT INFORMATION
  Report Type: 
  Country: None (occurrence: None)
  Receive Date: 20110607
  Receipt Date: 20100526
  Transmission Date: 20111010
  Serious: No
  Sender: FDA-Public Use
  Company Number: US-ASTRAZENECA-2010SE26081

PATIENT
  Sex: Female

DRUGS (18)
  1. VITAMINS [Concomitant]
     Dosage: UNKNOWN
  2. FLAXSEED OIL [Concomitant]
     Dosage: UNKNOWN
  3. CALCIUM CARBONATE [Concomitant]
     Dosage: UNKNOWN
  4. XALATAN [Concomitant]
     Dosage: UNKNOWN
  5. LIPITOR [Concomitant]
     Dosage: UNKNOWN
  6. STOOL SOFTENER [Concomitant]
     Dosage: UNKNOWN
  7. ALPHAGAN [Concomitant]
     Dosage: UNKNOWN
  8. LANOXIN [Concomitant]
     Dosage: UNKNOWN
  9. LISINOPRIL [Concomitant]
     Dosage: UNKNOWN
  10. COMBIVENT [Concomitant]
     Dosage: UNKNOWN
  11. QVAR 40 [Concomitant]
     Dosage: UNKNOWN
  12. PRILOSEC OTC [Suspect]
     Indication: HERNIA
     Route: 048
  13. LEVOXYL [Concomitant]
     Dosage: UNKNOWN
  14. GLIMEPIRIDE [Concomitant]
     Dosage: UNKNOWN
  15. WARFARIN SODIUM [Concomitant]
     Dosage: UNKNOWN
  16. AZOPT [Concomitant]
     Dosage: UNKNOWN
  17. PRILOSEC OTC [Suspect]
     Indication: GASTROOESOPHAGEAL REFLUX DISEASE
     Route: 048
  18. POTASSIUM CHLORIDE [Concomitant]
     Dosage: UNKNOWN

REACTIONS (1)
  - WEIGHT DECREASED [None]
